FAERS Safety Report 22084945 (Version 1)
Quarter: 2023Q1

REPORT INFORMATION
  Report Type: Spontaneous
  Country: PT (occurrence: PT)
  Receive Date: 20230310
  Receipt Date: 20230310
  Transmission Date: 20230418
  Serious: Yes (Other)
  Sender: FDA-Public Use
  Company Number: PT-002147023-NVSC2023PT051032

PATIENT
  Age: 46 Year
  Sex: Female

DRUGS (2)
  1. DABRAFENIB [Suspect]
     Active Substance: DABRAFENIB
     Indication: Papillary thyroid cancer
     Dosage: UNK
     Route: 065
     Dates: start: 202007
  2. TRAMETINIB [Suspect]
     Active Substance: TRAMETINIB
     Indication: Papillary thyroid cancer
     Dosage: UNK
     Route: 065
     Dates: start: 202007

REACTIONS (2)
  - Metastases to lymph nodes [Unknown]
  - Product use in unapproved indication [Unknown]
